FAERS Safety Report 24044792 (Version 1)
Quarter: 2024Q3

REPORT INFORMATION
  Report Type: Spontaneous
  Country: PL (occurrence: PL)
  Receive Date: 20240703
  Receipt Date: 20240703
  Transmission Date: 20241017
  Serious: Yes (Other)
  Sender: RANBAXY
  Company Number: PL-SUN PHARMACEUTICAL INDUSTRIES LTD-2024R1-454097

PATIENT
  Age: 29 Year
  Sex: Female

DRUGS (1)
  1. METHIMAZOLE [Suspect]
     Active Substance: METHIMAZOLE
     Indication: Graves^ disease
     Dosage: 45 MILLIGRAM, DAILY
     Route: 065

REACTIONS (3)
  - Premature delivery [Unknown]
  - Therapeutic response decreased [Unknown]
  - Exposure during pregnancy [Unknown]
